FAERS Safety Report 8809935 (Version 6)
Quarter: 2013Q1

REPORT INFORMATION
  Report Type: Spontaneous
  Country: US (occurrence: US)
  Receive Date: 20120926
  Receipt Date: 20130301
  Transmission Date: 20140127
  Serious: Yes (Hospitalization, Other)
  Sender: FDA-Public Use
  Company Number: US-009507513-1203USA01068

PATIENT
  Sex: Female
  Weight: 52.15 kg

DRUGS (7)
  1. FOSAMAX [Suspect]
     Indication: OSTEOPOROSIS
     Dosage: 70 MG, QW
     Route: 048
     Dates: start: 20010904, end: 201005
  2. FOSAMAX [Suspect]
     Dosage: 10 MG, UNK
     Route: 048
     Dates: start: 20010222, end: 20010903
  3. FOSAMAX PLUS D [Suspect]
     Indication: OSTEOPOROSIS
     Dosage: 70/2800 MG, UNK
     Route: 048
     Dates: start: 20080609
  4. ALENDRONATE SODIUM [Suspect]
     Indication: OSTEOPOROSIS
     Dosage: 70 MG, UNK
     Route: 048
     Dates: start: 20081021, end: 200901
  5. ALENDRONATE SODIUM [Suspect]
     Indication: OSTEOPOROSIS
     Dosage: 70 MG, UNK
     Dates: start: 20090425
  6. ALENDRONATE SODIUM [Suspect]
     Indication: OSTEOPOROSIS
     Dosage: 70 MG, UNK
     Dates: start: 20090719
  7. ALENDRONATE SODIUM [Suspect]
     Indication: OSTEOPOROSIS
     Dosage: 70 MG, UNK
     Dates: start: 20091027, end: 201004

REACTIONS (44)
  - Fracture nonunion [Unknown]
  - Fall [Unknown]
  - Open reduction of fracture [Unknown]
  - Open reduction of fracture [Unknown]
  - Spinal laminectomy [Unknown]
  - Spinal laminectomy [Unknown]
  - Bone graft [Unknown]
  - Surgery [Unknown]
  - Vitamin D deficiency [Recovering/Resolving]
  - Fall [Unknown]
  - Intramedullary rod insertion [Unknown]
  - Medical device removal [Unknown]
  - Anaemia postoperative [Unknown]
  - Transfusion [Unknown]
  - Infection [Unknown]
  - Hyperlipidaemia [Unknown]
  - Device failure [Unknown]
  - Cervical spinal stenosis [Unknown]
  - Joint swelling [Unknown]
  - Bone erosion [Recovered/Resolved]
  - Fracture nonunion [Unknown]
  - Sciatica [Unknown]
  - Foot fracture [Unknown]
  - Femur fracture [Unknown]
  - Tendonitis [Unknown]
  - Osteolysis [Unknown]
  - Musculoskeletal chest pain [Unknown]
  - Muscle atrophy [Unknown]
  - Essential hypertension [Recovering/Resolving]
  - Drug intolerance [Unknown]
  - Muscular weakness [Unknown]
  - Musculoskeletal pain [Unknown]
  - Neck pain [Unknown]
  - Skin lesion [Unknown]
  - Anaemia postoperative [Recovering/Resolving]
  - Large intestine polyp [Unknown]
  - Osteoarthritis [Unknown]
  - Lumbar spinal stenosis [Not Recovered/Not Resolved]
  - Rhinitis allergic [Unknown]
  - Ear pain [Unknown]
  - Pollakiuria [Unknown]
  - Hip arthroplasty [Unknown]
  - Muscle strain [Unknown]
  - Femur fracture [Unknown]
